FAERS Safety Report 7000535 (Version 2)
Quarter: 2020Q3

REPORT INFORMATION
  Report Type: Report from Study
  Country: US (occurrence: US)
  Receive Date: 20090522
  Receipt Date: 20090528
  Transmission Date: 20201104
  Serious: Yes (Death, Other)
  Sender: FDA-Public Use
  Company Number: US-ROCHE-634021

PATIENT
  Age: 80 Year
  Sex: Female

DRUGS (1)
  1. IBANDRONIC ACID. [Suspect]
     Active Substance: IBANDRONIC ACID
     Indication: PRODUCT USED FOR UNKNOWN INDICATION
     Route: 048
     Dates: start: 200803, end: 200903

REACTIONS (2)
  - Mesothelioma [Unknown]
  - Death [Fatal]

NARRATIVE: CASE EVENT DATE: 20090201
